FAERS Safety Report 12899790 (Version 1)
Quarter: 2016Q4

REPORT INFORMATION
  Report Type: Spontaneous
  Country: US (occurrence: US)
  Receive Date: 20161101
  Receipt Date: 20161101
  Transmission Date: 20170207
  Serious: No
  Sender: FDA-Public Use
  Company Number: US-PFIZER INC-2016496199

PATIENT
  Age: 77 Year
  Sex: Female
  Weight: 73 kg

DRUGS (1)
  1. SUTENT [Suspect]
     Active Substance: SUNITINIB MALATE
     Indication: LUNG NEOPLASM MALIGNANT
     Dosage: UNK, CYCLIC (3 WEEKS ON/ 3 WEEKS OFF) AND THEN AGAIN FOR 2 WEEKS
     Dates: start: 201607

REACTIONS (2)
  - Quality of life decreased [Recovering/Resolving]
  - Product use issue [Unknown]
